FAERS Safety Report 5867672-6 (Version None)
Quarter: 2008Q3

REPORT INFORMATION
  Report Type: 
  Country: None (occurrence: None)
  Receive Date: 20080902
  Receipt Date: 20080103
  Transmission Date: 20090109
  Serious: No
  Sender: FDA-Public Use
  Company Number: US-ABBOTT-08P-163-0433618-00

PATIENT
  Sex: Female
  Weight: 48.578 kg

DRUGS (3)
  1. DEPAKOTE ER [Suspect]
     Indication: GRAND MAL CONVULSION
     Route: 048
     Dates: end: 20070801
  2. DEPAKOTE ER [Suspect]
     Indication: ELECTROENCEPHALOGRAM ABNORMAL
     Route: 048
     Dates: start: 20070801
  3. PROPRANOLOL [Concomitant]
     Indication: DRUG USE FOR UNKNOWN INDICATION
     Route: 048

REACTIONS (2)
  - DRUG LEVEL DECREASED [None]
  - MEDICATION RESIDUE [None]
